FAERS Safety Report 6274213-0 (Version None)
Quarter: 2009Q3

REPORT INFORMATION
  Report Type: 
  Country: None (occurrence: None)
  Receive Date: 20090720
  Receipt Date: 20090715
  Transmission Date: 20100115
  Serious: Yes (Hospitalization)
  Sender: FDA-Public Use
  Company Number: DE-BRISTOL-MYERS SQUIBB COMPANY-14669972

PATIENT
  Age: 54 Year
  Sex: Male

DRUGS (3)
  1. CETUXIMAB [Suspect]
     Indication: NON-SMALL CELL LUNG CANCER
     Dosage: CETUXIMAB 2MG/ML 26MAY2009-09JUN2009 23JUN09-ONG
     Route: 042
     Dates: start: 20090526
  2. CARBOPLATIN [Suspect]
     Indication: NON-SMALL CELL LUNG CANCER
     Dosage: AUC 5 26MAY2009-09JUN2009 23JUN09-ONG
     Route: 042
     Dates: start: 20090526
  3. GEMCITABINE [Suspect]
     Indication: NON-SMALL CELL LUNG CANCER
     Dosage: 1200MG/M2:26MAY2009-09JUN2009(14D) 1000MG/M2:23JUN09-ONG
     Route: 042
     Dates: start: 20090526

REACTIONS (4)
  - ANAEMIA [None]
  - NEUTROPENIA [None]
  - RASH [None]
  - THROMBOCYTOPENIA [None]
